FAERS Safety Report 9827804 (Version 1)
Quarter: 2014Q1

REPORT INFORMATION
  Report Type: Spontaneous
  Country: US (occurrence: US)
  Receive Date: 20140117
  Receipt Date: 20140117
  Transmission Date: 20141002
  Serious: Yes (Other)
  Sender: FDA-Public Use
  Company Number: US-BAYER-2014-007420

PATIENT
  Age: 90 Year
  Sex: Male
  Weight: 76 kg

DRUGS (13)
  1. PHILLIPS STOOL SOFTENER BULK DOCUSATE [Suspect]
     Indication: CONSTIPATION
     Dosage: 1 DF, BID
     Route: 048
     Dates: start: 20131224
  2. ATENOLOL [Concomitant]
  3. COUMADIN [Concomitant]
  4. FLOMAX [TAMSULOSIN HYDROCHLORIDE] [Concomitant]
  5. GLIPIZIDE [Concomitant]
  6. LASIX [Concomitant]
  7. LEVOTHYROXINE [Concomitant]
  8. LISINOPRIL [Concomitant]
  9. PEPCID [Concomitant]
  10. POTASSIUM [Concomitant]
  11. PRAVASTATIN [Concomitant]
  12. SPIRIVA [Concomitant]
  13. CIPRO [Concomitant]

REACTIONS (2)
  - Blood glucose increased [Not Recovered/Not Resolved]
  - Incorrect drug administration duration [None]
